FAERS Safety Report 7331484-7 (Version None)
Quarter: 2011Q1

REPORT INFORMATION
  Report Type: 
  Country: None (occurrence: None)
  Receive Date: 20110228
  Receipt Date: 20110228
  Transmission Date: 20110831
  Serious: Yes (Life-Threatening, Other)
  Sender: FDA-Public Use
  Company Number: None

PATIENT
  Age: 53 Year
  Sex: Female
  Weight: 65.7716 kg

DRUGS (4)
  1. ZOLOFT [Suspect]
     Dosage: 50 MG 1 DAILY
     Dates: start: 20110130, end: 20110216
  2. AVELOX [Suspect]
     Indication: CHOLECYSTITIS
     Dosage: 400 MG 1 - DAILY
     Dates: start: 20110209
  3. AVELOX [Suspect]
     Indication: CHOLECYSTITIS
     Dosage: 400 MG 1 - DAILY
     Dates: start: 20110211
  4. AVELOX [Suspect]
     Indication: CHOLECYSTITIS
     Dosage: 400 MG 1 - DAILY
     Dates: start: 20110210

REACTIONS (24)
  - HEADACHE [None]
  - PARAESTHESIA [None]
  - MOVEMENT DISORDER [None]
  - INSOMNIA [None]
  - ABDOMINAL PAIN UPPER [None]
  - FAECES PALE [None]
  - POLLAKIURIA [None]
  - HALLUCINATION [None]
  - ARTHRALGIA [None]
  - MOOD ALTERED [None]
  - RASH [None]
  - CHEST DISCOMFORT [None]
  - DYSPNOEA [None]
  - GAIT DISTURBANCE [None]
  - ASTHENIA [None]
  - FEELING ABNORMAL [None]
  - MUSCLE SPASMS [None]
  - FATIGUE [None]
  - DECREASED APPETITE [None]
  - PRURITUS [None]
  - CHILLS [None]
  - MYALGIA [None]
  - PAIN [None]
  - HEART RATE IRREGULAR [None]
